FAERS Safety Report 11773998 (Version 2)
Quarter: 2015Q4

REPORT INFORMATION
  Report Type: Spontaneous
  Country: FR (occurrence: FR)
  Receive Date: 20151124
  Receipt Date: 20151212
  Transmission Date: 20160304
  Serious: Yes (Hospitalization, Other)
  Sender: FDA-Public Use
  Company Number: FR-ASTRAZENECA-2015SF13059

PATIENT
  Age: 83 Year
  Sex: Male

DRUGS (9)
  1. CIFLOX [Suspect]
     Active Substance: CIPROFLOXACIN
     Indication: INFECTION
     Route: 065
     Dates: start: 20150928, end: 20151005
  2. IPRATROPIUM [Concomitant]
     Active Substance: IPRATROPIUM
     Dosage: ONE INHALATION EVERY 6 HOURS IF NEEDED
  3. KARDEGIC [Concomitant]
     Active Substance: ASPIRIN LYSINE
  4. VIMPAT [Concomitant]
     Active Substance: LACOSAMIDE
     Indication: EPILEPSY
  5. TERBUTALINE [Concomitant]
     Active Substance: TERBUTALINE
     Dosage: ONE INHALATION EVERY 6 HOURS IF NEEDED
  6. INEXIUM [Suspect]
     Active Substance: ESOMEPRAZOLE
     Indication: GASTRIC ULCER
     Route: 048
     Dates: end: 20151014
  7. TAZOCILLINE [Suspect]
     Active Substance: PIPERACILLIN SODIUM\TAZOBACTAM SODIUM
     Indication: INFECTION
     Route: 065
     Dates: start: 20150928, end: 20151005
  8. MOVICOL [Concomitant]
     Active Substance: POLYETHYLENE GLYCOL 3350\POTASSIUM CHLORIDE\SODIUM BICARBONATE\SODIUM CHLORIDE
     Dosage: 2 SACHETS DAILY
  9. FUMAFER [Concomitant]
     Active Substance: FERROUS FUMARATE

REACTIONS (8)
  - Pneumonia aspiration [Unknown]
  - Oxygen saturation decreased [Unknown]
  - Inappropriate antidiuretic hormone secretion [Recovering/Resolving]
  - Hyponatraemia [Recovered/Resolved]
  - Confusional state [Unknown]
  - Pulmonary congestion [Unknown]
  - Hypophagia [Unknown]
  - Somnolence [Unknown]

NARRATIVE: CASE EVENT DATE: 20151013
